FAERS Safety Report 10855527 (Version 1)
Quarter: 2015Q1

REPORT INFORMATION
  Report Type: Spontaneous
  Country: US (occurrence: None)
  Receive Date: 20150218
  Receipt Date: 20150218
  Transmission Date: 20150721
  Serious: Yes (Life-Threatening, Disabling, Other)
  Sender: FDA-Public Use
  Company Number: None

PATIENT
  Age: 35 Year
  Sex: Female
  Weight: 63.5 kg

DRUGS (1)
  1. ANTI NAUSEA [Suspect]
     Active Substance: DEXTROSE\FRUCTOSE\PHOSPHORIC ACID
     Indication: DRUG THERAPY
     Dosage: ONE DOSE ANTINAUSEA; ONCE THIS VISIT
     Route: 042

REACTIONS (2)
  - Feeling cold [None]
  - Dyspnoea [None]

NARRATIVE: CASE EVENT DATE: 20140813
